FAERS Safety Report 23268514 (Version 1)
Quarter: 2023Q4

REPORT INFORMATION
  Report Type: Other
  Country: US (occurrence: US)
  Receive Date: 20231206
  Receipt Date: 20231206
  Transmission Date: 20240110
  Serious: Yes (Other)
  Sender: FDA-Public Use
  Company Number: US-Stemline Therapeutics, Inc.-2023ST004018

PATIENT
  Sex: Female

DRUGS (3)
  1. ORSERDU [Suspect]
     Active Substance: ELACESTRANT
     Indication: Product used for unknown indication
     Dosage: 345 MG, TABLET, ONCE DAILY
     Route: 048
     Dates: start: 20230824
  2. ORSERDU [Suspect]
     Active Substance: ELACESTRANT
     Dosage: 258 MG (86 MG, 3 TABLETS, ONCE A DAY)
     Route: 048
     Dates: start: 20231102, end: 20231120
  3. ORSERDU [Suspect]
     Active Substance: ELACESTRANT
     Route: 048
     Dates: start: 20230905, end: 20231120

REACTIONS (3)
  - Disease progression [Not Recovered/Not Resolved]
  - Therapy cessation [Unknown]
  - Drug ineffective [Unknown]

NARRATIVE: CASE EVENT DATE: 20231120
